FAERS Safety Report 4890591-9 (Version None)
Quarter: 2006Q1

REPORT INFORMATION
  Report Type: 
  Country: None (occurrence: None)
  Receive Date: 20060125
  Receipt Date: 20060113
  Transmission Date: 20060701
  Serious: Yes (Hospitalization)
  Sender: FDA-Public Use
  Company Number: IT-JNJFOC-20051100443

PATIENT
  Sex: Male
  Weight: 100 kg

DRUGS (4)
  1. REOPRO [Suspect]
     Dosage: 04.0 ML IN 50ML DILUENT AT A RATE OF 04.0 ML/HR. TOTAL INFUSION GIVEN WAS 48 ML
     Route: 042
  2. REOPRO [Suspect]
     Indication: ACUTE MYOCARDIAL INFARCTION
     Route: 042
  3. RETEPLASE [Suspect]
     Route: 042
  4. RETEPLASE [Suspect]
     Indication: ACUTE MYOCARDIAL INFARCTION
     Route: 042

REACTIONS (2)
  - CHEST PAIN [None]
  - MYOCARDIAL INFARCTION [None]
